FAERS Safety Report 6938628-7 (Version None)
Quarter: 2010Q3

REPORT INFORMATION
  Report Type: 
  Country: None (occurrence: None)
  Receive Date: 20100824
  Receipt Date: 20100810
  Transmission Date: 20110219
  Serious: No
  Sender: FDA-Public Use
  Company Number: US-B.I. PHARMACEUTICALS,INC./RIDGEFIELD-2010-BP-09140BP

PATIENT
  Sex: Female

DRUGS (7)
  1. ZANTAC 150 [Suspect]
     Indication: DYSPEPSIA
     Route: 048
     Dates: start: 20100701, end: 20100810
  2. ALLEGRA [Concomitant]
     Indication: SEASONAL ALLERGY
     Route: 048
  3. SINGULAIR [Concomitant]
     Indication: SEASONAL ALLERGY
     Route: 048
  4. BUSPAR [Concomitant]
     Indication: ANXIETY
     Route: 048
  5. BUSPAR [Concomitant]
     Indication: PANIC ATTACK
  6. LISINOPRIL [Concomitant]
     Indication: HYPERTENSION
     Route: 048
  7. SIMVASTATIN [Concomitant]
     Indication: BLOOD CHOLESTEROL INCREASED
     Route: 048

REACTIONS (1)
  - DRUG INEFFECTIVE [None]
